FAERS Safety Report 5813881-1 (Version None)
Quarter: 2008Q3

REPORT INFORMATION
  Report Type: 
  Country: None (occurrence: None)
  Receive Date: 20080717
  Receipt Date: 20080710
  Transmission Date: 20090109
  Serious: Yes (Disabling, Other)
  Sender: FDA-Public Use
  Company Number: PHHO2006US09205

PATIENT
  Sex: Female
  Weight: 83.6 kg

DRUGS (4)
  1. FEMARA [Suspect]
     Indication: BREAST CANCER
     Dosage: 2.5 MG, QD
     Route: 048
     Dates: start: 20030321, end: 20060531
  2. ZOLEDRONIC ACID [Suspect]
     Indication: METASTASES TO BONE
     Dosage: 4MG EVERY 6 MONTHS
     Route: 042
     Dates: start: 20030321, end: 20060531
  3. VITAMIN D [Concomitant]
  4. CALCIUM [Concomitant]

REACTIONS (5)
  - ANGIOPLASTY [None]
  - BLINDNESS [None]
  - RETINAL ARTERY OCCLUSION [None]
  - VISUAL IMPAIRMENT [None]
  - VITRECTOMY [None]
